FAERS Safety Report 23262695 (Version 1)
Quarter: 2023Q4

REPORT INFORMATION
  Report Type: Spontaneous
  Country: US (occurrence: None)
  Receive Date: 20231204
  Receipt Date: 20231204
  Transmission Date: 20240110
  Serious: Yes (Death)
  Sender: FDA-Public Use
  Company Number: None

PATIENT
  Age: 83 Year
  Sex: Male

DRUGS (24)
  1. RAYALDEE [Suspect]
     Active Substance: CALCIFEDIOL
     Indication: Hyperparathyroidism
     Dates: start: 20230207, end: 20231018
  2. Allopuronl [Concomitant]
  3. ATORVASTATIN [Concomitant]
  4. cefadnoul [Concomitant]
  5. Cephalexin [Concomitant]
  6. Clopdogrel [Concomitant]
  7. ELIQUIS [Concomitant]
     Active Substance: APIXABAN
  8. Fluad 65+ [Concomitant]
  9. FUROSEMIDE [Concomitant]
     Active Substance: FUROSEMIDE
  10. Havix [Concomitant]
  11. HYDROXYZINE [Concomitant]
  12. Pratropium/Albertol [Concomitant]
  13. LISINOPRIL [Concomitant]
  14. LOSARTAN [Concomitant]
  15. METOPROLOL SUCCINATE [Concomitant]
     Active Substance: METOPROLOL SUCCINATE
  16. midoine [Concomitant]
  17. Mitazaprine [Concomitant]
  18. PREVNAR [Concomitant]
     Active Substance: PNEUMOCOCCAL 7-VALENT CONJUGATE VACCINE (DIPHTHERIA CRM197 PROTEIN)
  19. QUETIAPINE [Concomitant]
  20. Rameleton [Concomitant]
  21. RAYALDEE [Concomitant]
     Active Substance: CALCIFEDIOL
  22. SERTRALINE [Concomitant]
  23. SODIUM BICARBONATE [Concomitant]
     Active Substance: SODIUM BICARBONATE
  24. TAMSULOSIN [Concomitant]

REACTIONS (1)
  - Death [None]

NARRATIVE: CASE EVENT DATE: 20231202
